FAERS Safety Report 10533187 (Version 1)
Quarter: 2014Q4

REPORT INFORMATION
  Report Type: Spontaneous
  Country: US (occurrence: None)
  Receive Date: 20141021
  Receipt Date: 20141021
  Transmission Date: 20150529
  Serious: Yes (Hospitalization)
  Sender: FDA-Public Use
  Company Number: None

PATIENT
  Age: 17 Year
  Sex: Female
  Weight: 28.58 kg

DRUGS (1)
  1. INTRATHECAL BACLOFEN [Suspect]
     Active Substance: BACLOFEN
     Dates: start: 20090520, end: 20141006

REACTIONS (3)
  - Drug withdrawal syndrome [None]
  - Device failure [None]
  - Medical device change [None]

NARRATIVE: CASE EVENT DATE: 20141006
